FAERS Safety Report 21919908 (Version 2)
Quarter: 2023Q1

REPORT INFORMATION
  Report Type: Report from Study
  Country: US (occurrence: US)
  Receive Date: 20230127
  Receipt Date: 20230203
  Transmission Date: 20230418
  Serious: No
  Sender: FDA-Public Use
  Company Number: US-GSK-US2022AMR109201

PATIENT

DRUGS (24)
  1. BELANTAMAB MAFODOTIN [Suspect]
     Active Substance: BELANTAMAB MAFODOTIN
     Indication: Plasma cell myeloma
     Dosage: UNK
     Dates: start: 20220517
  2. VITAMIN C [Concomitant]
     Active Substance: ASCORBIC ACID
     Indication: Product used for unknown indication
     Dosage: 1000 MG, QD
     Route: 048
  3. TYLENOL [Concomitant]
     Active Substance: ACETAMINOPHEN
     Indication: Product used for unknown indication
     Dosage: 1000 MG (EVERY 6 HOURS)
     Route: 048
     Dates: start: 20220918
  4. ZOVIRAX [Concomitant]
     Active Substance: ACYCLOVIR
     Indication: Product used for unknown indication
     Dosage: 1 DF, BID
     Route: 048
     Dates: start: 20220912
  5. ASPIRIN [Concomitant]
     Active Substance: ASPIRIN
     Indication: Product used for unknown indication
     Dosage: 81 MG, QD(ENTERIC COATED)
     Route: 048
  6. TESSALON [Concomitant]
     Active Substance: BENZONATATE
     Indication: Product used for unknown indication
     Dosage: 1 DF, TID
     Route: 048
     Dates: start: 20221017, end: 20221028
  7. BUSPAR [Concomitant]
     Active Substance: BUSPIRONE HYDROCHLORIDE
     Indication: Product used for unknown indication
     Dosage: 1.5 DF, BID (ONE AND ONE HALF TABLET)
     Route: 048
     Dates: start: 20221017
  8. BUSPAR [Concomitant]
     Active Substance: BUSPIRONE HYDROCHLORIDE
     Dosage: 1.5 DF, BID (ONE AND ONE HALF TABLET)
     Route: 048
     Dates: start: 20221212
  9. CALCIUM [Concomitant]
     Active Substance: CALCIUM
     Indication: Product used for unknown indication
     Dosage: UNK
     Route: 048
  10. ZYRTEC [Concomitant]
     Active Substance: CETIRIZINE HYDROCHLORIDE
     Indication: Product used for unknown indication
     Dosage: 10 MG, QD
     Route: 048
     Dates: start: 20220919
  11. VITAMIN D3 + VITAMIN K2 [Concomitant]
     Indication: Product used for unknown indication
     Dosage: UNK
     Route: 048
  12. VOLTAREN [Concomitant]
     Active Substance: DICLOFENAC SODIUM
     Indication: Arthralgia
     Dosage: 2 G, QID
     Route: 061
     Dates: start: 20210113
  13. LEXAPRO [Concomitant]
     Active Substance: ESCITALOPRAM OXALATE
     Indication: Product used for unknown indication
     Dosage: 1.5 DF, QD, 30 MG
     Route: 048
     Dates: start: 20220831
  14. KLOR-CON [Concomitant]
     Active Substance: POTASSIUM CHLORIDE
     Indication: Product used for unknown indication
     Dosage: 20 MEQ, BID(MIX 1 PACKET AS DIRECTED)
     Route: 048
     Dates: start: 20220819
  15. MAGNESIUM LACTATE [Concomitant]
     Active Substance: MAGNESIUM LACTATE
     Indication: Product used for unknown indication
     Dosage: 84 MG, QD
     Route: 048
     Dates: start: 20220822, end: 20221102
  16. MAGNESIUM LACTATE [Concomitant]
     Active Substance: MAGNESIUM LACTATE
     Dosage: 1 DF, QD
     Route: 048
     Dates: start: 20221102
  17. MAGNESIUM LACTATE [Concomitant]
     Active Substance: MAGNESIUM LACTATE
     Dosage: 1 DF, QD
     Route: 048
     Dates: start: 20221208
  18. TOPAMAX [Concomitant]
     Active Substance: TOPIRAMATE
     Indication: Product used for unknown indication
     Dosage: 50 MG, BID
     Route: 048
     Dates: start: 20221017, end: 20221117
  19. TOPAMAX [Concomitant]
     Active Substance: TOPIRAMATE
     Dosage: 1 DF, BID
     Route: 048
     Dates: start: 20221117
  20. ASCORBIC ACID + BIOFLAVONOIDS + HESPERIDIN + ROSA CANINA + RUTOSIDE [Concomitant]
     Indication: Product used for unknown indication
     Dosage: UNK
     Route: 048
     Dates: start: 20221110
  21. ABILIFY [Concomitant]
     Active Substance: ARIPIPRAZOLE
     Indication: Product used for unknown indication
     Dosage: 1 DF, QD
     Route: 048
     Dates: start: 20221110
  22. REQUIP [Concomitant]
     Active Substance: ROPINIROLE HYDROCHLORIDE
     Indication: Product used for unknown indication
     Dosage: 0.5 MG, TID
     Route: 048
     Dates: start: 20221214
  23. MENAQUINONE 6 [Concomitant]
     Active Substance: MENAQUINONE 6
     Indication: Product used for unknown indication
     Dosage: UNK
     Route: 048
  24. LEVOTHYROXINE [Concomitant]
     Active Substance: LEVOTHYROXINE
     Indication: Product used for unknown indication
     Dosage: 50 MG, QD
     Route: 048
     Dates: start: 20221018

REACTIONS (16)
  - Visual acuity reduced [Not Recovered/Not Resolved]
  - Keratopathy [Recovering/Resolving]
  - Eye disorder [Not Recovered/Not Resolved]
  - Dry eye [Unknown]
  - Visual impairment [Recovering/Resolving]
  - Blister [Unknown]
  - Pain [Unknown]
  - Intraocular pressure decreased [Unknown]
  - Blepharitis [Unknown]
  - Wheezing [Unknown]
  - Nausea [Unknown]
  - Fatigue [Unknown]
  - Vomiting [Unknown]
  - Condition aggravated [Unknown]
  - Diplopia [Unknown]
  - Night blindness [Unknown]

NARRATIVE: CASE EVENT DATE: 20220513
